FAERS Safety Report 8464083-4 (Version None)
Quarter: 2012Q2

REPORT INFORMATION
  Report Type: 
  Country: None (occurrence: None)
  Receive Date: 20120625
  Receipt Date: 20120620
  Transmission Date: 20120825
  Serious: Yes (Other)
  Sender: FDA-Public Use
  Company Number: US-PFIZER INC-2012148553

PATIENT
  Sex: Female

DRUGS (3)
  1. LIPITOR [Suspect]
     Dosage: UNK
  2. ARICEPT [Suspect]
     Dosage: UNK
  3. DETROL [Suspect]
     Dosage: UNK

REACTIONS (3)
  - GASTROINTESTINAL DISORDER [None]
  - SYSTEMIC LUPUS ERYTHEMATOSUS [None]
  - CROHN'S DISEASE [None]
